FAERS Safety Report 8051175-7 (Version None)
Quarter: 2012Q1

REPORT INFORMATION
  Report Type: 
  Country: None (occurrence: None)
  Receive Date: 20120117
  Receipt Date: 20120113
  Transmission Date: 20120608
  Serious: Yes (Other)
  Sender: FDA-Public Use
  Company Number: PHFR2011GB02314

PATIENT
  Sex: Female

DRUGS (1)
  1. CLOZARIL [Suspect]
     Indication: SCHIZOPHRENIA
     Route: 048
     Dates: start: 20040922

REACTIONS (15)
  - ANAEMIA [None]
  - NAUSEA [None]
  - OVERWEIGHT [None]
  - PALPITATIONS [None]
  - DIABETES MELLITUS [None]
  - DISORIENTATION [None]
  - HEART RATE IRREGULAR [None]
  - BALANCE DISORDER [None]
  - ASTHMA [None]
  - DYSPNOEA [None]
  - CONFUSIONAL STATE [None]
  - HYPOAESTHESIA [None]
  - TREMOR [None]
  - BLOOD GLUCOSE ABNORMAL [None]
  - HEADACHE [None]
